FAERS Safety Report 8472026-2 (Version None)
Quarter: 2012Q2

REPORT INFORMATION
  Report Type: 
  Country: None (occurrence: None)
  Receive Date: 20120627
  Receipt Date: 20120620
  Transmission Date: 20120825
  Serious: Yes (Other)
  Sender: FDA-Public Use
  Company Number: US-JNJFOC-20120610717

PATIENT
  Sex: Female

DRUGS (2)
  1. ULTRAM [Suspect]
     Indication: PAIN
     Dosage: 50 MG TWO TABLETS AS NEEDED
     Route: 048
  2. ULTRAM [Suspect]
     Indication: INFLAMMATION
     Dosage: 50 MG TWO TABLETS AS NEEDED
     Route: 048

REACTIONS (1)
  - COELIAC DISEASE [None]
